FAERS Safety Report 13958474 (Version 1)
Quarter: 2017Q3

REPORT INFORMATION
  Report Type: Spontaneous
  Country: US (occurrence: US)
  Receive Date: 20170911
  Receipt Date: 20170911
  Transmission Date: 20171128
  Serious: No
  Sender: FDA-Public Use
  Company Number: US-ROCHE-590111

PATIENT
  Age: 57 Year
  Sex: Male
  Weight: 176.42 kg

DRUGS (11)
  1. TREANDA [Concomitant]
     Active Substance: BENDAMUSTINE HYDROCHLORIDE
  2. MABTHERA [Suspect]
     Active Substance: RITUXIMAB
     Dosage: 1070 UNK, 1/WEEK
     Route: 042
     Dates: start: 20040715, end: 20080916
  3. SYNTHROID [Concomitant]
     Active Substance: LEVOTHYROXINE SODIUM
     Route: 048
  4. BENADRYL [Concomitant]
     Active Substance: DIPHENHYDRAMINE HYDROCHLORIDE
     Indication: PREMEDICATION
  5. LASIX [Concomitant]
     Active Substance: FUROSEMIDE
     Route: 048
  6. LEVOXYL [Concomitant]
     Active Substance: LEVOTHYROXINE SODIUM
     Indication: PRODUCT USED FOR UNKNOWN INDICATION
  7. ASPIRIN ^BAYER^ [Concomitant]
     Active Substance: ASPIRIN
     Route: 048
  8. MABTHERA [Suspect]
     Active Substance: RITUXIMAB
     Dosage: 1070 UNK, 1/WEEK
     Route: 042
  9. TORSEMIDE. [Concomitant]
     Active Substance: TORSEMIDE
     Indication: PRODUCT USED FOR UNKNOWN INDICATION
  10. MABTHERA [Suspect]
     Active Substance: RITUXIMAB
     Indication: LYMPHOCYTIC LYMPHOMA
     Dosage: 1070 UNK, 1/WEEK
     Route: 042
     Dates: start: 200407, end: 20080916
  11. TYLENOL [Concomitant]
     Active Substance: ACETAMINOPHEN
     Indication: PREMEDICATION

REACTIONS (9)
  - Lymphadenopathy [Unknown]
  - Personality change [Recovered/Resolved]
  - Headache [Recovered/Resolved]
  - Anxiety [Recovered/Resolved]
  - Dizziness [Recovered/Resolved]
  - Fatigue [Not Recovered/Not Resolved]
  - Ocular discomfort [Recovered/Resolved]
  - Discomfort [Recovered/Resolved]
  - Agitation [Recovered/Resolved]

NARRATIVE: CASE EVENT DATE: 200805
